FAERS Safety Report 24539831 (Version 1)
Quarter: 2024Q4

REPORT INFORMATION
  Report Type: Spontaneous
  Country: US (occurrence: None)
  Receive Date: 20241022
  Receipt Date: 20241022
  Transmission Date: 20250115
  Serious: Yes (Life-Threatening)
  Sender: Public
  Company Number: None

PATIENT
  Age: 61 Year
  Sex: Female
  Weight: 59.85 kg

DRUGS (2)
  1. LACOSAMIDE [Suspect]
     Active Substance: LACOSAMIDE
     Indication: Epilepsy
     Dosage: FREQUENCY : TWICE A DAY;?
     Route: 048
     Dates: start: 20240715, end: 20240905
  2. OXCARBAZEPINE [Suspect]
     Active Substance: OXCARBAZEPINE
     Dates: start: 20211123

REACTIONS (4)
  - Therapy change [None]
  - Unresponsive to stimuli [None]
  - Pulse absent [None]
  - Arrhythmia [None]

NARRATIVE: CASE EVENT DATE: 20240903
